FAERS Safety Report 6908097-1 (Version None)
Quarter: 2010Q3

REPORT INFORMATION
  Report Type: 
  Country: None (occurrence: None)
  Receive Date: 20100716
  Receipt Date: 20100122
  Transmission Date: 20110219
  Serious: Yes (Other)
  Sender: FDA-Public Use
  Company Number: 2010009386

PATIENT
  Age: 89 Year
  Sex: Female
  Weight: 57.1 kg

DRUGS (3)
  1. CELEBREX [Suspect]
     Indication: ARTHRITIS
     Dosage: 200 MG, ORAL
     Route: 048
     Dates: start: 20100121, end: 20100122
  2. LISINOPRIL [Concomitant]
  3. ASPIRIN [Concomitant]

REACTIONS (6)
  - ABDOMINAL PAIN UPPER [None]
  - ASTHENIA [None]
  - HEADACHE [None]
  - MALAISE [None]
  - NAUSEA [None]
  - RECTAL HAEMORRHAGE [None]
